FAERS Safety Report 9072006 (Version 1)
Quarter: 2013Q1

REPORT INFORMATION
  Report Type: Spontaneous
  Country: US (occurrence: US)
  Receive Date: 20130206
  Receipt Date: 20130206
  Transmission Date: 20140127
  Serious: No
  Sender: FDA-Public Use
  Company Number: US-ALLERGAN-1214912US

PATIENT
  Age: 83 Year
  Sex: Female

DRUGS (18)
  1. RESTASIS? [Suspect]
     Indication: DRY EYE
     Dosage: 2 GTT, BID
     Route: 047
     Dates: start: 201209
  2. ASA [Concomitant]
     Indication: PRODUCT USED FOR UNKNOWN INDICATION
     Dosage: 81 MG, QAM
     Route: 048
  3. LORATADINE [Concomitant]
     Indication: HYPERSENSITIVITY
     Dosage: UNK UNK, QD
     Route: 048
  4. METOPROLOL [Concomitant]
     Indication: HYPERTENSION
     Dosage: 50 MG, BID
     Route: 048
  5. METOPROLOL [Concomitant]
     Indication: ARRHYTHMIA
  6. CALCIUM +VIT D [Concomitant]
     Indication: SUPPLEMENTATION THERAPY
     Dosage: 600 MG, BID
     Route: 048
  7. CALCIUM +VIT D [Concomitant]
     Dosage: 400 MG, BID
     Route: 048
  8. WARFARIN [Concomitant]
     Indication: PRODUCT USED FOR UNKNOWN INDICATION
     Dosage: 5 MG, UNK
     Route: 048
  9. WARFARIN [Concomitant]
     Dosage: 7.5 MG, Q WEEK
     Route: 048
  10. PRESERVISION LUTEIN EYE VITA.+MIN.SUP.SOFTG. [Concomitant]
     Indication: MACULAR DEGENERATION
     Dosage: UNK UNK, BID
     Route: 048
  11. LOVASTATIN [Concomitant]
     Indication: BLOOD CHOLESTEROL INCREASED
     Dosage: UNK UNK, QHS
     Route: 048
  12. POKE BERRY [Concomitant]
     Indication: OSTEOARTHRITIS
     Dosage: UNK, BID
     Route: 048
  13. METROGEL [Concomitant]
     Indication: ROSACEA
     Dosage: UNK UNK, QD
     Route: 061
  14. VITAMIN B COMPLEX                  /00003501/ [Concomitant]
     Indication: SUPPLEMENTATION THERAPY
     Dosage: UNK UNK, QAM
     Route: 048
  15. VITAMIN C                          /00008001/ [Concomitant]
     Indication: SUPPLEMENTATION THERAPY
     Dosage: 500 MG, QAM
     Route: 048
  16. VITAMIN D /00107901/ [Concomitant]
     Indication: VITAMIN D DEFICIENCY
     Dosage: 1000 MG, QAM
     Route: 048
  17. MVI [Concomitant]
     Indication: SUPPLEMENTATION THERAPY
     Dosage: UNK
     Route: 048
  18. VAGIFEM [Concomitant]
     Indication: PRODUCT USED FOR UNKNOWN INDICATION
     Dosage: 10 ?G, UNK

REACTIONS (3)
  - Visual impairment [Recovered/Resolved]
  - Eye irritation [Recovering/Resolving]
  - Foreign body sensation in eyes [Recovering/Resolving]
